FAERS Safety Report 9472214 (Version 1)
Quarter: 2013Q3

REPORT INFORMATION
  Report Type: Spontaneous
  Country: US (occurrence: None)
  Receive Date: 20130821
  Receipt Date: 20130821
  Transmission Date: 20140515
  Serious: No
  Sender: FDA-Public Use
  Company Number: None

PATIENT
  Age: 64 Year
  Sex: Female
  Weight: 65.77 kg

DRUGS (1)
  1. TECFIDERA [Suspect]
     Indication: MULTIPLE SCLEROSIS
     Dosage: 1-120MG/1-240MG PILLS?TWICE DAILY?TAKEN BY MOUTH?
     Route: 048
     Dates: start: 20130806, end: 20130815

REACTIONS (10)
  - Rash [None]
  - Skin ulcer [None]
  - Lethargy [None]
  - Fatigue [None]
  - Pain in extremity [None]
  - Decreased interest [None]
  - Crying [None]
  - Depression [None]
  - Multiple sclerosis [None]
  - Dysstasia [None]
